FAERS Safety Report 6571262-X (Version None)
Quarter: 2010Q1

REPORT INFORMATION
  Report Type: 
  Country: None (occurrence: None)
  Receive Date: 20100129
  Receipt Date: 20100121
  Transmission Date: 20100710
  Serious: Yes (Hospitalization)
  Sender: FDA-Public Use
  Company Number: DSA_42489_2010

PATIENT
  Age: 3 Month
  Sex: Male

DRUGS (4)
  1. VASOTEC [Suspect]
     Indication: CARDIAC FAILURE CONGESTIVE
     Dosage: (0.3 MG/KG QD ORAL)
     Route: 048
  2. DIGOXIN [Suspect]
     Indication: CARDIAC FAILURE CONGESTIVE
     Dosage: (10 UG/KG, QD), (DF)
  3. FUROSEMIDE [Suspect]
     Indication: CARDIAC FAILURE CONGESTIVE
     Dosage: (1 MG/KG QD), (DF)
  4. SPIRONOLACTONE [Suspect]
     Dosage: (1 MG/KG QD), (DF)

REACTIONS (11)
  - ATRIOVENTRICULAR DISSOCIATION [None]
  - CARDIAC MURMUR [None]
  - DIARRHOEA [None]
  - ELECTROCARDIOGRAM T WAVE AMPLITUDE INCREASED [None]
  - GENERALISED OEDEMA [None]
  - HYPERKALAEMIA [None]
  - NODAL RHYTHM [None]
  - RENAL FAILURE [None]
  - THERAPEUTIC AGENT TOXICITY [None]
  - URINE OUTPUT DECREASED [None]
  - VENTRICULAR EXTRASYSTOLES [None]
